FAERS Safety Report 9387203 (Version 1)
Quarter: 2013Q3

REPORT INFORMATION
  Report Type: Report from Study
  Country: FR (occurrence: FR)
  Receive Date: 20130708
  Receipt Date: 20130708
  Transmission Date: 20140515
  Serious: Yes (Death, Other)
  Sender: FDA-Public Use
  Company Number: FR-ROCHE-1241528

PATIENT
  Sex: 0

DRUGS (3)
  1. BEVACIZUMAB [Suspect]
     Indication: GLIOBLASTOMA
     Route: 065
  2. IRINOTECAN [Suspect]
     Indication: GLIOBLASTOMA
     Route: 065
  3. IRINOTECAN [Suspect]
     Route: 065

REACTIONS (8)
  - Abscess intestinal [Fatal]
  - Neutropenia [Unknown]
  - Thrombocytopenia [Unknown]
  - Infection [Unknown]
  - Cerebral haemorrhage [Unknown]
  - Gastrointestinal toxicity [Unknown]
  - Impaired healing [Unknown]
  - Embolism [Unknown]
